FAERS Safety Report 7374881-6 (Version None)
Quarter: 2011Q1

REPORT INFORMATION
  Report Type: 
  Country: None (occurrence: None)
  Receive Date: 20110310
  Receipt Date: 20110228
  Transmission Date: 20110831
  Serious: Yes (Other)
  Sender: FDA-Public Use
  Company Number: 11-011

PATIENT
  Age: 15 Year
  Sex: Male

DRUGS (10)
  1. ENGLISH PLANTAIN [Suspect]
     Indication: IMMUNE TOLERANCE INDUCTION
     Dosage: 1:10 W/V
     Dates: start: 20100708, end: 20110201
  2. MIXED MITE [Suspect]
     Indication: IMMUNE TOLERANCE INDUCTION
     Dosage: 5,000 PNU
     Dates: start: 20100708, end: 20110201
  3. SYMBICORTE [Concomitant]
  4. ALEGRA D [Concomitant]
  5. SHORT RAGWEED [Suspect]
     Dosage: 1:20 W/V
     Dates: start: 20100708, end: 20110201
  6. OAK TREE [Suspect]
     Indication: IMMUNE TOLERANCE INDUCTION
     Dosage: 1:10 W/V
     Dates: start: 20100708, end: 20110201
  7. BIRCH TREE [Suspect]
     Indication: IMMUNE TOLERANCE INDUCTION
     Dosage: 1:10 W/V
     Dates: start: 20010708, end: 20110201
  8. GRASS MIX (KORT + SV) [Suspect]
     Indication: IMMUNE TOLERANCE INDUCTION
     Dosage: 100,000 BAU
     Dates: start: 20100708, end: 20110201
  9. RED MAPLE [Suspect]
     Indication: IMMUNE TOLERANCE INDUCTION
     Dosage: 1:10 W/V
     Dates: start: 20100708, end: 20110201
  10. ELM TREE [Suspect]
     Indication: IMMUNE TOLERANCE INDUCTION
     Dosage: 1:20 W/V
     Dates: start: 20100708, end: 20110201

REACTIONS (1)
  - ANAPHYLACTIC REACTION [None]
